FAERS Safety Report 20984035 (Version 6)
Quarter: 2023Q1

REPORT INFORMATION
  Report Type: Spontaneous
  Country: US (occurrence: US)
  Receive Date: 20220621
  Receipt Date: 20230303
  Transmission Date: 20230418
  Serious: No
  Sender: FDA-Public Use
  Company Number: US-GLAXOSMITHKLINE-US2022AMR095131

PATIENT
  Sex: Female

DRUGS (5)
  1. ZEJULA [Suspect]
     Active Substance: NIRAPARIB
     Indication: Ovarian cancer
     Dosage: 100 MG, BID
     Dates: start: 20220618
  2. ZEJULA [Suspect]
     Active Substance: NIRAPARIB
     Dosage: 200 MG, QD
     Route: 048
     Dates: start: 202206
  3. ZEJULA [Suspect]
     Active Substance: NIRAPARIB
     Dosage: 200 MG, QD
     Route: 048
  4. ZEJULA [Suspect]
     Active Substance: NIRAPARIB
     Dosage: 100 MG, QD
  5. ZEJULA [Suspect]
     Active Substance: NIRAPARIB
     Dosage: 100 MG, QD

REACTIONS (12)
  - Blood pressure increased [Unknown]
  - Cardiac disorder [Recovered/Resolved]
  - Dyspepsia [Recovered/Resolved]
  - White blood cell count decreased [Unknown]
  - Increased appetite [Unknown]
  - Hot flush [Unknown]
  - Dry mouth [Unknown]
  - Hysterectomy [Unknown]
  - Ill-defined disorder [Unknown]
  - Computerised tomogram abdomen abnormal [Unknown]
  - Insomnia [Unknown]
  - Intentional product misuse [Unknown]
